FAERS Safety Report 24443148 (Version 1)
Quarter: 2024Q4

REPORT INFORMATION
  Report Type: Spontaneous
  Country: NL (occurrence: NL)
  Receive Date: 20241016
  Receipt Date: 20241016
  Transmission Date: 20250115
  Serious: Yes (Hospitalization, Other)
  Sender: CELLTRION
  Company Number: None

PATIENT

DRUGS (10)
  1. RITUXIMAB [Suspect]
     Active Substance: RITUXIMAB
     Indication: Hashimoto^s encephalopathy
     Dosage: 375 MG/ M2 WEEKLY FOR FOUR WEEKS
     Route: 042
  2. MYCOPHENOLATE MOFETIL [Suspect]
     Active Substance: MYCOPHENOLATE MOFETIL
     Indication: Hashimoto^s encephalopathy
     Dosage: 1 G, QD (ADDITIONAL INFORMATION ON DRUG (CODED): OFF LABEL USE, MISUSE)
  3. PREDNISONE [Suspect]
     Active Substance: PREDNISONE
     Indication: Hashimoto^s encephalopathy
     Dosage: 1 MG/KG/DAY
     Route: 048
  4. PREDNISONE [Suspect]
     Active Substance: PREDNISONE
     Dosage: 5 MG/DAY EVERY OTHER DAY
     Route: 048
  5. PREDNISONE [Suspect]
     Active Substance: PREDNISONE
     Dosage: 7.5 MG/DAY
     Route: 048
  6. PREDNISONE [Suspect]
     Active Substance: PREDNISONE
     Indication: Hashimoto^s encephalopathy
     Dosage: 20 MG, QD (ADDITIONAL INFORMATION ON DRUG (CODED): OFF LABEL USE, MISUSE)
     Route: 048
  7. METHYLPREDNISOLONE [Suspect]
     Active Substance: METHYLPREDNISOLONE
     Indication: Hashimoto^s encephalopathy
     Dosage: 15 MG/KG, QD (PULSE THERAPY) (ADDITIONAL INFORMATION ON DRUG (CODED): OFF LABEL USE, MISUSE)
  8. METHYLPREDNISOLONE [Suspect]
     Active Substance: METHYLPREDNISOLONE
     Indication: Hashimoto^s encephalopathy
     Dosage: 15 MG/KG/DAY FOR THREE CONSECUTIVE DAYS
  9. LEVOTHYROXINE [Concomitant]
     Active Substance: LEVOTHYROXINE
     Indication: Hashimoto^s encephalopathy
     Dosage: 5 MG, Q.O.D
  10. LEVOTHYROXINE [Concomitant]
     Active Substance: LEVOTHYROXINE
     Indication: Hypothyroidism
     Dosage: UNK

REACTIONS (14)
  - Condition aggravated [Unknown]
  - Disease recurrence [Unknown]
  - Hashimoto^s encephalopathy [Recovering/Resolving]
  - Cushing^s syndrome [Unknown]
  - Disturbance in attention [Recovering/Resolving]
  - Abdominal abscess [Unknown]
  - Hypogammaglobulinaemia [Unknown]
  - Confusional state [Recovering/Resolving]
  - Orchitis [Unknown]
  - Ureaplasma infection [Unknown]
  - Hypertension [Unknown]
  - Headache [Recovering/Resolving]
  - Drug ineffective [Recovering/Resolving]
  - Intentional product use issue [Unknown]
